FAERS Safety Report 5495464-9 (Version None)
Quarter: 2007Q4

REPORT INFORMATION
  Report Type: 
  Country: None (occurrence: None)
  Receive Date: 20071023
  Receipt Date: 20071018
  Transmission Date: 20080405
  Serious: Yes (Death)
  Sender: FDA-Public Use
  Company Number: 163-21880-07090628

PATIENT
  Age: 59 Year
  Sex: Female

DRUGS (3)
  1. REVLIMID [Suspect]
     Indication: MULTIPLE MYELOMA
     Dosage: 25 MG, QD, ORAL
     Route: 048
     Dates: start: 20070416, end: 20070430
  2. THALOMID [Suspect]
     Indication: MULTIPLE MYELOMA
     Dosage: 50-100-200 MG, QHS X 2 WEEKS, ORAL; 200 MG, QHS, ORAL
     Route: 048
     Dates: start: 20070219, end: 20070416
  3. THALOMID [Suspect]
     Indication: MULTIPLE MYELOMA
     Dosage: 50-100-200 MG, QHS X 2 WEEKS, ORAL; 200 MG, QHS, ORAL
     Route: 048
     Dates: start: 20070514

REACTIONS (5)
  - FATIGUE [None]
  - MALAISE [None]
  - PNEUMONIA [None]
  - SEPSIS [None]
  - WEIGHT DECREASED [None]
